FAERS Safety Report 9949843 (Version 1)
Quarter: 2014Q1

REPORT INFORMATION
  Report Type: Report from Study
  Country: US (occurrence: US)
  Receive Date: 20140304
  Receipt Date: 20140304
  Transmission Date: 20141002
  Serious: No
  Sender: FDA-Public Use
  Company Number: US-ABBVIE-13P-163-1067514-00

PATIENT
  Age: 32 Year
  Sex: Male
  Weight: 157.08 kg

DRUGS (3)
  1. HUMIRA [Suspect]
     Indication: SERONEGATIVE ARTHRITIS
     Route: 058
     Dates: start: 20130318, end: 20130318
  2. METHOTREXATE [Concomitant]
     Indication: SERONEGATIVE ARTHRITIS
  3. PREDNISONE [Concomitant]
     Indication: SERONEGATIVE ARTHRITIS

REACTIONS (1)
  - Off label use [Not Recovered/Not Resolved]
